FAERS Safety Report 7429029-6 (Version None)
Quarter: 2011Q2

REPORT INFORMATION
  Report Type: 
  Country: None (occurrence: None)
  Receive Date: 20110421
  Receipt Date: 20110413
  Transmission Date: 20111010
  Serious: Yes (Hospitalization, Other)
  Sender: FDA-Public Use
  Company Number: CA-ROCHE-757098

PATIENT
  Sex: Female
  Weight: 56.7 kg

DRUGS (9)
  1. DILAUDID [Concomitant]
  2. TRAZODONE HCL [Concomitant]
     Dosage: TRAZADONE
  3. METHOTREXATE [Concomitant]
  4. HYDROMORPHONE HCL [Concomitant]
  5. DICLECTIN [Concomitant]
  6. ATIVAN [Concomitant]
     Dosage: PRN
  7. PREDNISONE [Concomitant]
  8. TOCILIZUMAB [Suspect]
     Indication: RHEUMATOID ARTHRITIS
     Dosage: FORM:INFUSION
     Route: 042
     Dates: start: 20100726, end: 20110325
  9. AXERT [Concomitant]
     Indication: MIGRAINE

REACTIONS (7)
  - RASH [None]
  - LOCALISED INFECTION [None]
  - FALL [None]
  - MIGRAINE [None]
  - HIP FRACTURE [None]
  - JOINT SURGERY [None]
  - SUNBURN [None]
